FAERS Safety Report 8022604-X (Version None)
Quarter: 2012Q1

REPORT INFORMATION
  Report Type: 
  Country: None (occurrence: None)
  Receive Date: 20120104
  Receipt Date: 20111013
  Transmission Date: 20120608
  Serious: Yes (Death, Hospitalization)
  Sender: FDA-Public Use
  Company Number: JP-GLAXOSMITHKLINE-B0755612A

PATIENT
  Sex: Male

DRUGS (8)
  1. ROHYPNOL [Concomitant]
     Indication: HYPNOTHERAPY
     Dosage: 2MG PER DAY
     Route: 048
  2. LAMICTAL [Suspect]
     Dosage: 25MG PER DAY
     Route: 048
     Dates: start: 20110217, end: 20110304
  3. LAMICTAL [Suspect]
     Indication: BIPOLAR DISORDER
     Dosage: 50MG PER DAY
     Route: 048
  4. ZOTEPINE [Concomitant]
     Indication: BIPOLAR I DISORDER
     Dosage: 75MG PER DAY
     Route: 048
  5. DEPAS [Concomitant]
     Indication: ANXIETY
     Dosage: 1.5MG PER DAY
     Route: 048
  6. TETRAMIDE [Concomitant]
     Indication: HYPNOTHERAPY
     Dosage: 30MG PER DAY
     Route: 048
  7. LAMICTAL [Suspect]
     Indication: BIPOLAR I DISORDER
     Dosage: 25MG ALTERNATE DAYS
     Route: 048
     Dates: start: 20110203, end: 20110216
  8. VALERIN (JAPAN) [Concomitant]
     Indication: BIPOLAR DISORDER
     Dosage: 800MG PER DAY
     Route: 048

REACTIONS (6)
  - PULMONARY ALVEOLAR HAEMORRHAGE [None]
  - DRUG RASH WITH EOSINOPHILIA AND SYSTEMIC SYMPTOMS [None]
  - PNEUMONIA [None]
  - TOXIC EPIDERMAL NECROLYSIS [None]
  - DRUG ERUPTION [None]
  - BACTERAEMIA [None]
